FAERS Safety Report 14188798 (Version 2)
Quarter: 2017Q4

REPORT INFORMATION
  Report Type: Report from Study
  Country: CO (occurrence: CO)
  Receive Date: 20171114
  Receipt Date: 20171127
  Transmission Date: 20180321
  Serious: Yes (Death)
  Sender: FDA-Public Use
  Company Number: CO-ROCHE-2024850

PATIENT
  Sex: Female

DRUGS (1)
  1. LUCENTIS [Suspect]
     Active Substance: RANIBIZUMAB
     Indication: RETINOPATHY HYPERTENSIVE
     Route: 047
     Dates: start: 20170609

REACTIONS (3)
  - Vasculitis [Fatal]
  - Renal failure [Fatal]
  - Product use in unapproved indication [Unknown]
